FAERS Safety Report 6384808-1 (Version None)
Quarter: 2009Q4

REPORT INFORMATION
  Report Type: 
  Country: None (occurrence: None)
  Receive Date: 20091001
  Receipt Date: 20090922
  Transmission Date: 20100525
  Serious: Yes (Hospitalization)
  Sender: FDA-Public Use
  Company Number: NO-ELI_LILLY_AND_COMPANY-NO200909000043

PATIENT
  Sex: Male
  Weight: 54 kg

DRUGS (4)
  1. ZYPADHERA [Suspect]
     Indication: SCHIZOPHRENIA
     Dosage: 300 MG, UNK
     Dates: start: 20090831
  2. ZYPREXA [Suspect]
     Indication: SCHIZOPHRENIA
     Dosage: 15 MG, DAILY (1/D)
     Route: 048
     Dates: start: 20080101, end: 20090830
  3. ZOPICLONE [Concomitant]
     Dosage: 7.5 MG, EACH EVENING
  4. RISPERDAL CONSTA [Concomitant]
     Dosage: 100 MG, EVERY 14 DAYS
     Route: 030
     Dates: end: 20090801

REACTIONS (10)
  - AGITATION [None]
  - CONFUSIONAL STATE [None]
  - DEPRESSED LEVEL OF CONSCIOUSNESS [None]
  - DISORIENTATION [None]
  - DYSPNOEA [None]
  - GAIT DISTURBANCE [None]
  - RESTLESSNESS [None]
  - SCHIZOPHRENIA, PARANOID TYPE [None]
  - SEDATION [None]
  - TACHYCARDIA [None]
